FAERS Safety Report 23608599 (Version 1)
Quarter: 2024Q1

REPORT INFORMATION
  Report Type: Other
  Country: DE (occurrence: None)
  Receive Date: 20240308
  Receipt Date: 20240308
  Transmission Date: 20240410
  Serious: No
  Sender: FDA-Public Use
  Company Number: DE-ROCHE-3520702

PATIENT
  Age: 45 Year
  Sex: Female

DRUGS (7)
  1. OCRELIZUMAB [Suspect]
     Active Substance: OCRELIZUMAB
     Indication: Relapsing multiple sclerosis
     Dosage: DOSE FREQUENCY: ONCE
     Route: 042
     Dates: start: 20230824
  2. PREDNISOLONE [Concomitant]
     Active Substance: PREDNISOLONE
     Dosage: DOSE FREQUENCY: ONCE
     Route: 042
     Dates: start: 20230824, end: 20230824
  3. PREDNISOLONE [Concomitant]
     Active Substance: PREDNISOLONE
     Dosage: DOSE FREQUENCY: ONCE
     Route: 042
     Dates: start: 20230907, end: 20230907
  4. PREDNISOLONE [Concomitant]
     Active Substance: PREDNISOLONE
     Dosage: DOSE FREQUENCY: ONCE
     Route: 042
     Dates: start: 20240229, end: 20240229
  5. EBASTINE [Concomitant]
     Active Substance: EBASTINE
     Dosage: DOSE FREQUENCY: 2 TIMES A DAY FOR 3 DAYS, START 1 DAY BEFORE INFUSION
     Route: 048
     Dates: start: 20230823, end: 20230825
  6. EBASTINE [Concomitant]
     Active Substance: EBASTINE
     Dosage: DOSE FREQUENCY: 2 TIMES A DAY FOR 3 DAYS, SATRT 1 DAY BEFORE INFUSION
     Route: 048
     Dates: start: 20230906, end: 20230908
  7. EBASTINE [Concomitant]
     Active Substance: EBASTINE
     Dosage: DOSE FREQUENCY: 2 TIMES A DAY FOR 3 DAYS, START 1 DAY BEFORE INFUSION
     Route: 048
     Dates: start: 20240228, end: 20240301

REACTIONS (1)
  - Influenza [Recovered/Resolved]

NARRATIVE: CASE EVENT DATE: 20240101
